FAERS Safety Report 4759358-6 (Version None)
Quarter: 2005Q3

REPORT INFORMATION
  Report Type: 
  Country: None (occurrence: None)
  Receive Date: 20050831
  Receipt Date: 20050818
  Transmission Date: 20060218
  Serious: Yes (Death, Hospitalization)
  Sender: FDA-Public Use
  Company Number: 2005117240

PATIENT
  Age: 61 Year
  Sex: Male

DRUGS (18)
  1. ESTRACYT (ESTRAMUSTINE PHOSPHATE SODIUM) [Suspect]
     Indication: PROSTATE CANCER
     Dosage: SEE IMAGE
     Route: 048
     Dates: start: 20050114, end: 20050303
  2. ESTRACYT (ESTRAMUSTINE PHOSPHATE SODIUM) [Suspect]
     Indication: PROSTATE CANCER
     Dosage: SEE IMAGE
     Route: 048
     Dates: start: 20050415, end: 20050623
  3. ESTRACYT (ESTRAMUSTINE PHOSPHATE SODIUM) [Suspect]
     Indication: PROSTATE CANCER
     Dosage: SEE IMAGE
     Route: 048
     Dates: start: 20050624, end: 20050728
  4. . [Concomitant]
  5. CARBOPLATIN [Suspect]
     Indication: PROSTATE CANCER
     Dosage: 570 MG
     Dates: start: 20050222, end: 20050222
  6. PACLITAXEL [Suspect]
     Indication: PROSTATE CANCER
     Dosage: 170 MG, INTRAVENOUS
     Route: 042
     Dates: start: 20050222, end: 20050222
  7. PACLITAXEL [Suspect]
     Indication: PROSTATE CANCER
     Dosage: 170 MG, INTRAVENOUS
     Route: 042
     Dates: start: 20050301, end: 20050301
  8. VALSARTAN [Concomitant]
  9. ETIZOLAM (ETIZOLAM) [Concomitant]
  10. CANDESARTAN CILEXETIL (CANDESARTAN CILEXETIL) [Concomitant]
  11. MAGNESIUM OXIDE (MAGNESIUM OXIDE) [Concomitant]
  12. OXYCODONE HCL [Concomitant]
  13. NARTOGRASTIM (NARTOGRASTIM) [Concomitant]
  14. FILGRASTIM (FILGRASTIM) [Concomitant]
  15. OMEPRAZOLE SODIUM (OMEPRAZOLE SODIUM) [Concomitant]
  16. NITROGLYCERIN [Concomitant]
  17. NIFEDIPINE [Concomitant]
  18. MORPHINE [Concomitant]

REACTIONS (6)
  - BLOOD PRESSURE DECREASED [None]
  - HAEMODIALYSIS [None]
  - MYOCARDIAL INFARCTION [None]
  - RENAL FAILURE ACUTE [None]
  - SEPSIS [None]
  - WHITE BLOOD CELL COUNT DECREASED [None]
